FAERS Safety Report 22044875 (Version 2)
Quarter: 2023Q1

REPORT INFORMATION
  Report Type: Spontaneous
  Country: US (occurrence: US)
  Receive Date: 20230228
  Receipt Date: 20230302
  Transmission Date: 20230417
  Serious: Yes (Other)
  Sender: FDA-Public Use
  Company Number: US-PFIZER INC-202300085259

PATIENT
  Age: 65 Year
  Sex: Female
  Weight: 79.83 kg

DRUGS (1)
  1. XELJANZ XR [Suspect]
     Active Substance: TOFACITINIB CITRATE
     Dosage: 11 MG, 1X/DAY (1 TABLET ONCE A DAY)

REACTIONS (8)
  - Transient ischaemic attack [Unknown]
  - Atrial fibrillation [Unknown]
  - Thrombosis [Unknown]
  - Autoimmune disorder [Unknown]
  - Illness [Unknown]
  - COVID-19 [Recovering/Resolving]
  - Post-acute COVID-19 syndrome [Unknown]
  - Tachycardia [Unknown]

NARRATIVE: CASE EVENT DATE: 20230101
